FAERS Safety Report 9365172 (Version 1)
Quarter: 2013Q2

REPORT INFORMATION
  Report Type: Spontaneous
  Country: FR (occurrence: FR)
  Receive Date: 20130624
  Receipt Date: 20130624
  Transmission Date: 20140414
  Serious: Yes (Hospitalization)
  Sender: FDA-Public Use
  Company Number: PHHY2013FR062131

PATIENT
  Age: 81 Year
  Sex: Female

DRUGS (15)
  1. CUBICIN [Suspect]
     Indication: STAPHYLOCOCCAL INFECTION
     Dosage: UNK
     Route: 042
     Dates: start: 20130319, end: 20130321
  2. VANCOMYCIN [Suspect]
     Indication: STAPHYLOCOCCAL INFECTION
     Dosage: UNK
     Dates: start: 20130313, end: 20130318
  3. FLECAINE [Concomitant]
     Dosage: UNK
     Dates: start: 20130313
  4. PRAVASTATINE [Concomitant]
  5. RAMIPRIL [Concomitant]
     Dosage: UNK
     Dates: start: 20130321
  6. FUROSEMIDE [Concomitant]
     Dosage: UNK
     Dates: start: 20130324
  7. PANTOPRAZOLE [Concomitant]
     Dosage: UNK
     Dates: start: 20130312
  8. UMULINE [Concomitant]
     Dosage: UNK
     Dates: start: 20130313, end: 20130315
  9. HYDROSOL POLYVITAMIN BON [Concomitant]
     Dosage: UNK
     Dates: start: 20130313, end: 20130316
  10. LOVENOX [Concomitant]
     Dosage: UNK
     Dates: start: 20130312, end: 20130317
  11. XARELTO [Concomitant]
     Dosage: UNK
     Dates: start: 20130317, end: 20130323
  12. ATARAX [Concomitant]
     Dosage: UNK
     Dates: start: 20130317, end: 20130318
  13. ROCEPHINE [Concomitant]
     Indication: LUNG DISORDER
     Dosage: UNK
     Dates: start: 20130312, end: 20130317
  14. SOLUMEDROL [Concomitant]
     Indication: LUNG DISORDER
     Dosage: UNK
     Dates: start: 20130312, end: 20130314
  15. SOLUPRED [Concomitant]
     Indication: LUNG DISORDER
     Dosage: UNK
     Dates: start: 20130315, end: 20130317

REACTIONS (3)
  - Renal tubular necrosis [Recovered/Resolved with Sequelae]
  - Tubulointerstitial nephritis [Recovered/Resolved with Sequelae]
  - Renal failure acute [Recovered/Resolved with Sequelae]
